FAERS Safety Report 13471602 (Version 3)
Quarter: 2017Q2

REPORT INFORMATION
  Report Type: Report from Study
  Country: US (occurrence: US)
  Receive Date: 20170424
  Receipt Date: 20170626
  Transmission Date: 20170830
  Serious: Yes (Hospitalization, Other)
  Sender: FDA-Public Use
  Company Number: US-AMGEN-USASL2017060507

PATIENT
  Age: 68 Year
  Sex: Female

DRUGS (5)
  1. ENBREL [Suspect]
     Active Substance: ETANERCEPT
     Indication: RHEUMATOID ARTHRITIS
     Dosage: 50 MG, QWK
     Route: 065
     Dates: start: 201702, end: 201703
  2. ENBREL [Suspect]
     Active Substance: ETANERCEPT
     Dosage: 50 MG, QWK
     Route: 065
     Dates: start: 20170605, end: 201706
  3. ENBREL [Suspect]
     Active Substance: ETANERCEPT
     Dosage: 50 MG, QWK
     Route: 065
     Dates: start: 20170612
  4. ENBREL [Suspect]
     Active Substance: ETANERCEPT
     Dosage: 50 MG, QWK
     Route: 065
     Dates: end: 201705
  5. ENBREL [Suspect]
     Active Substance: ETANERCEPT
     Dosage: 50 MG, QWK
     Route: 065
     Dates: end: 201706

REACTIONS (9)
  - Rheumatoid arthritis [Not Recovered/Not Resolved]
  - Oesophageal pain [Unknown]
  - Urinary tract infection [Recovered/Resolved]
  - Restlessness [Unknown]
  - Oral herpes [Unknown]
  - Sleep disorder due to a general medical condition [Unknown]
  - Nausea [Not Recovered/Not Resolved]
  - Gastritis erosive [Unknown]
  - Infection [Unknown]

NARRATIVE: CASE EVENT DATE: 2017
